FAERS Safety Report 24562959 (Version 1)
Quarter: 2024Q4

REPORT INFORMATION
  Report Type: Report from Study
  Country: HU (occurrence: HU)
  Receive Date: 20241030
  Receipt Date: 20241030
  Transmission Date: 20250114
  Serious: Yes (Other)
  Sender: ABBVIE
  Company Number: HU-ABBVIE-5981151

PATIENT
  Sex: Female

DRUGS (12)
  1. CARBIDOPA\LEVODOPA [Suspect]
     Active Substance: CARBIDOPA\LEVODOPA
     Indication: Parkinson^s disease
     Dosage: MORNING DOSE: 9.0 ML; CONTINUOUS DOSE: 3.2 ML/HOUR; EXTRA DOSE: 1.5 ML
     Route: 050
     Dates: start: 20240206
  2. CARBIDOPA\LEVODOPA [Suspect]
     Active Substance: CARBIDOPA\LEVODOPA
  3. CILOSTAZOL [Concomitant]
     Active Substance: CILOSTAZOL
     Indication: Vasoconstriction
     Dosage: 200 MILLIGRAM?FORM STRENGTH: 100 MILLIGRAM
     Route: 048
     Dates: start: 2016
  4. XANAX [Concomitant]
     Active Substance: ALPRAZOLAM
     Indication: Depression
     Dosage: 0.5 MILLIGRAM?FORM STRENGTH: 0.25 MILLIGRAM
     Route: 048
     Dates: start: 2004
  5. PERINDOPRIL ERBUMINE [Concomitant]
     Active Substance: PERINDOPRIL ERBUMINE
     Indication: Hypertension
     Dosage: TIME INTERVAL: 0.33333333 DAYS: 20 MILLIGRAM
     Route: 048
     Dates: start: 2014
  6. EUTHYROX [Concomitant]
     Active Substance: LEVOTHYROXINE SODIUM
     Indication: Hypothyroidism
     Dosage: FIRST DAY 50 MICROG / DAY, SECOND DAY 75 MICROG /DAY
     Route: 048
     Dates: start: 2012
  7. METFORMIN HYDROCHLORIDE [Concomitant]
     Active Substance: METFORMIN HYDROCHLORIDE
     Indication: Diabetes mellitus
     Dosage: 2000 MILLIGRAM?FORM STRENGTH: 1000 MILLIGRAM
     Route: 048
     Dates: start: 2002
  8. TOUJEO [Concomitant]
     Active Substance: INSULIN GLARGINE
     Indication: Diabetes mellitus
     Dosage: 14 IU (INTERNATIONAL UNIT)
     Route: 058
     Dates: start: 2016
  9. APIDRA [Concomitant]
     Active Substance: INSULIN GLULISINE
     Indication: Diabetes mellitus
     Dosage: TIME INTERVAL: 0.33333333 DAYS: MORNING: 10 IU, NOON: 8 IU, EVENING: 8 IU
     Route: 058
     Dates: start: 2021
  10. ESOMEPRAZOLE MAGNESIUM [Concomitant]
     Active Substance: ESOMEPRAZOLE MAGNESIUM
     Indication: Gastrooesophageal reflux disease
     Dosage: FORM STRENGTH: 40 MILLIGRAM
     Route: 048
     Dates: start: 2018
  11. CITALOPRAM [Concomitant]
     Active Substance: CITALOPRAM
     Indication: Stress
     Dosage: FORM STRENGTH: 20 MILLIGRAM
     Route: 048
     Dates: start: 2004
  12. BISOPROLOL FUMARATE [Concomitant]
     Active Substance: BISOPROLOL FUMARATE
     Indication: Hypertension
     Dosage: 10 MILLIGRAM?FORM STRENGTH: 5 MILLIGRAM
     Route: 048
     Dates: start: 2020

REACTIONS (1)
  - Basal cell carcinoma [Recovered/Resolved]

NARRATIVE: CASE EVENT DATE: 20240101
